FAERS Safety Report 16611140 (Version 1)
Quarter: 2019Q3

REPORT INFORMATION
  Report Type: Spontaneous
  Country: US (occurrence: US)
  Receive Date: 20190722
  Receipt Date: 20190722
  Transmission Date: 20191004
  Serious: Yes (Death, Hospitalization)
  Sender: FDA-Public Use
  Company Number: US-AMREGENT-20191465

PATIENT
  Age: 57 Year
  Sex: Male

DRUGS (4)
  1. PROTON PUMP INHIBITOR [Concomitant]
     Active Substance: UNSPECIFIED INGREDIENT
     Dosage: UNKNOWN
     Route: 041
  2. CEFEPIME [Concomitant]
     Active Substance: CEFEPIME HYDROCHLORIDE
     Dosage: UNKNOWN
     Route: 065
  3. DEXAMETHASONE SODIUM PHOSPHATE INJECTION, USP (4901-25) [Suspect]
     Active Substance: DEXAMETHASONE SODIUM PHOSPHATE
     Dosage: 4MG Q6H X2D THEN 10D TAPER
     Route: 042
  4. EPINEPHRINE INJECTION, USP (0517-1071-01) [Suspect]
     Active Substance: EPINEPHRINE
     Dosage: UNKNOWN
     Route: 051

REACTIONS (7)
  - Strongyloidiasis [Fatal]
  - Upper gastrointestinal haemorrhage [Fatal]
  - Drug ineffective for unapproved indication [Unknown]
  - Product use in unapproved indication [Unknown]
  - Multiple organ dysfunction syndrome [None]
  - Abdominal wound dehiscence [None]
  - Gastrointestinal perforation [None]
